FAERS Safety Report 4774052-3 (Version None)
Quarter: 2005Q3

REPORT INFORMATION
  Report Type: 
  Country: None (occurrence: None)
  Receive Date: 20050920
  Receipt Date: 20050909
  Transmission Date: 20060218
  Serious: Yes (Other)
  Sender: FDA-Public Use
  Company Number: JP-MERCK-0509USA01369

PATIENT
  Age: 90 Year
  Sex: Female

DRUGS (7)
  1. PEPCID [Suspect]
     Route: 042
     Dates: start: 20050709, end: 20050712
  2. TRANSAMIN [Suspect]
     Indication: BLEEDING TIME PROLONGED
     Route: 042
     Dates: start: 20050709, end: 20050712
  3. [COMPOSITION UNSPECIFIED] [Concomitant]
     Route: 042
     Dates: start: 20050709, end: 20050712
  4. SOLULACT [Concomitant]
     Route: 042
     Dates: start: 20050709, end: 20050712
  5. FESIN [Suspect]
     Indication: ANAEMIA
     Route: 042
     Dates: start: 20050709, end: 20050712
  6. DEXTROSE [Concomitant]
     Route: 042
     Dates: start: 20050709, end: 20050712
  7. ADONA [Suspect]
     Indication: BLEEDING TIME PROLONGED
     Route: 065
     Dates: start: 20050709, end: 20050712

REACTIONS (1)
  - MYOCLONIC EPILEPSY [None]
